FAERS Safety Report 7705507-7 (Version None)
Quarter: 2011Q3

REPORT INFORMATION
  Report Type: 
  Country: None (occurrence: None)
  Receive Date: 20110824
  Receipt Date: 20110819
  Transmission Date: 20111222
  Serious: Yes (Death, Hospitalization)
  Sender: FDA-Public Use
  Company Number: BR-ABBOTT-11P-020-0848016-00

PATIENT
  Sex: Female
  Weight: 90 kg

DRUGS (1)
  1. HUMIRA [Suspect]
     Indication: RHEUMATOID ARTHRITIS
     Route: 058
     Dates: end: 20110708

REACTIONS (9)
  - EMPHYSEMA [None]
  - LUNG DISORDER [None]
  - LUNG ABSCESS [None]
  - INFECTION [None]
  - INFLUENZA [None]
  - PNEUMONIA [None]
  - IMMUNODEFICIENCY [None]
  - PLEURAL EFFUSION [None]
  - DIABETES MELLITUS INADEQUATE CONTROL [None]
